FAERS Safety Report 12217889 (Version 1)
Quarter: 2016Q1

REPORT INFORMATION
  Report Type: Spontaneous
  Country: US (occurrence: None)
  Receive Date: 20160328
  Receipt Date: 20160328
  Transmission Date: 20160526
  Serious: Yes (Other)
  Sender: FDA-Public Use
  Company Number: None

PATIENT
  Age: 57 Year
  Sex: Female
  Weight: 82.1 kg

DRUGS (46)
  1. DOXYCYCLINE HYCLATE. [Concomitant]
     Active Substance: DOXYCYCLINE HYCLATE
  2. PANTOPRAZOLE [Concomitant]
     Active Substance: PANTOPRAZOLE SODIUM
  3. CYCLOBENZAPR [Concomitant]
  4. DUTASTERIDE. [Concomitant]
     Active Substance: DUTASTERIDE
  5. IBUPROFEN. [Concomitant]
     Active Substance: IBUPROFEN
  6. OTEZLA [Suspect]
     Active Substance: APREMILAST
     Indication: PSORIATIC ARTHROPATHY
     Route: 048
     Dates: start: 20160108, end: 20160310
  7. HUMIRA [Suspect]
     Active Substance: ADALIMUMAB
     Indication: PSORIATIC ARTHROPATHY
     Route: 058
     Dates: end: 201508
  8. PULMICORT TURBUHALER [Concomitant]
     Active Substance: BUDESONIDE
  9. PROMETHAZINE [Concomitant]
     Active Substance: PROMETHAZINE\PROMETHAZINE HYDROCHLORIDE
  10. PROMETH/COD SYP [Concomitant]
  11. VITAMIN D [Concomitant]
     Active Substance: CHOLECALCIFEROL
  12. ALENDRONATE SODIUM. [Concomitant]
     Active Substance: ALENDRONATE SODIUM
  13. CLARINEX [Concomitant]
     Active Substance: DESLORATADINE
  14. LASIX [Concomitant]
     Active Substance: FUROSEMIDE
  15. NORCO [Concomitant]
     Active Substance: ACETAMINOPHEN\HYDROCODONE BITARTRATE
  16. IRON [Concomitant]
     Active Substance: IRON
  17. ALLOPURINOL. [Concomitant]
     Active Substance: ALLOPURINOL
  18. ARAVA [Concomitant]
     Active Substance: LEFLUNOMIDE
  19. DULOXETINE. [Concomitant]
     Active Substance: DULOXETINE
  20. VITAMIN B12 [Concomitant]
     Active Substance: CYANOCOBALAMIN
  21. VITAMIN C [Concomitant]
     Active Substance: ASCORBIC ACID
  22. LYRICA [Concomitant]
     Active Substance: PREGABALIN
  23. FERROUS SULF [Concomitant]
  24. LEVOTHYROXIN [Concomitant]
     Active Substance: LEVOTHYROXINE
  25. ZOLPIDEM [Concomitant]
     Active Substance: ZOLPIDEM\ZOLPIDEM TARTRATE
  26. CYCLOBENZAPRINE [Concomitant]
     Active Substance: CYCLOBENZAPRINE
  27. DULERA [Concomitant]
     Active Substance: FORMOTEROL FUMARATE DIHYDRATE\MOMETASONE FUROATE
  28. LEFLUNOMIDE. [Concomitant]
     Active Substance: LEFLUNOMIDE
  29. CALCIUM+D [Concomitant]
  30. CENTRUM SILVER [Concomitant]
     Active Substance: MINERALS\VITAMINS
  31. ZINC [Concomitant]
     Active Substance: ZINC\ZINC CHLORIDE
  32. AVODART [Concomitant]
     Active Substance: DUTASTERIDE
  33. CIPROFLOXACIN. [Concomitant]
     Active Substance: CIPROFLOXACIN
  34. DIPHEN/ATROP [Concomitant]
     Active Substance: ATROPINE SULFATE\DIPHENOXYLATE
  35. METRONIDOZOL [Concomitant]
  36. TYLENOL [Concomitant]
     Active Substance: ACETAMINOPHEN
  37. BIOTIN [Concomitant]
     Active Substance: BIOTIN
  38. PARAFON FORTE DSC [Concomitant]
     Active Substance: CHLORZOXAZONE
  39. FINASTERIDE. [Concomitant]
     Active Substance: FINASTERIDE
  40. IMODIUM [Concomitant]
     Active Substance: LOPERAMIDE HYDROCHLORIDE
  41. SMZ/TMP [Concomitant]
     Active Substance: SULFAMETHOXAZOLE\TRIMETHOPRIM
  42. VIOS MIS SYSTEM [Concomitant]
  43. TRAMADOL. [Concomitant]
     Active Substance: TRAMADOL
  44. ALBUTEROL. [Concomitant]
     Active Substance: ALBUTEROL
  45. TAMSULOSIN [Concomitant]
     Active Substance: TAMSULOSIN
  46. VENTOLIN HFA AER [Concomitant]

REACTIONS (3)
  - Surgery [None]
  - Wound [None]
  - Nausea [None]

NARRATIVE: CASE EVENT DATE: 20160324
